FAERS Safety Report 4744857-3 (Version None)
Quarter: 2005Q3

REPORT INFORMATION
  Report Type: 
  Country: None (occurrence: None)
  Receive Date: 20050815
  Receipt Date: 20050804
  Transmission Date: 20060218
  Serious: Yes (Hospitalization)
  Sender: FDA-Public Use
  Company Number: IT-GLAXOSMITHKLINE-B0390195A

PATIENT
  Age: 60 Year
  Sex: Male

DRUGS (2)
  1. ACYCLOVIR [Suspect]
     Indication: HERPES ZOSTER
     Dosage: 750MG PER DAY
     Route: 042
     Dates: start: 20050611, end: 20050613
  2. PARACETAMOL + CODEINE PHOSPHATE [Concomitant]
     Route: 048

REACTIONS (6)
  - ALANINE AMINOTRANSFERASE ABNORMAL [None]
  - ASPARTATE AMINOTRANSFERASE ABNORMAL [None]
  - ENZYME ABNORMALITY [None]
  - GAMMA-GLUTAMYLTRANSFERASE ABNORMAL [None]
  - GASTROINTESTINAL DISORDER [None]
  - LIPASE ABNORMAL [None]
